FAERS Safety Report 14670844 (Version 2)
Quarter: 2018Q2

REPORT INFORMATION
  Report Type: Spontaneous
  Country: JP (occurrence: JP)
  Receive Date: 20180322
  Receipt Date: 20180413
  Transmission Date: 20180711
  Serious: Yes (Hospitalization, Other)
  Sender: FDA-Public Use
  Company Number: JP-SUNOVION-2018SUN001083

PATIENT
  Age: 65 Year
  Sex: Male
  Weight: 36 kg

DRUGS (9)
  1. SPIOLTO [Concomitant]
     Active Substance: OLODATEROL HYDROCHLORIDE\TIOTROPIUM BROMIDE MONOHYDRATE
     Indication: CHRONIC OBSTRUCTIVE PULMONARY DISEASE
     Route: 055
  2. REFLEX [Concomitant]
     Active Substance: MIRTAZAPINE
     Route: 065
     Dates: start: 20180305
  3. ACELIO [Concomitant]
     Active Substance: ACETAMINOPHEN
     Dosage: DOSE UNKNOWN
     Route: 065
     Dates: start: 20180222
  4. SYMMETREL [Concomitant]
     Active Substance: AMANTADINE HYDROCHLORIDE
     Route: 065
     Dates: start: 20180307
  5. LYRICA [Concomitant]
     Active Substance: PREGABALIN
     Route: 048
  6. LUNESTA [Suspect]
     Active Substance: ESZOPICLONE
     Indication: INSOMNIA
     Dosage: 2 MG, QD
     Route: 048
     Dates: start: 20180309, end: 20180310
  7. SULPIRIDE [Concomitant]
     Active Substance: SULPIRIDE
     Route: 065
     Dates: start: 20180307
  8. ZYPREXA [Concomitant]
     Active Substance: OLANZAPINE
     Dosage: IN CASE OF SLEEPLESSNESS
     Route: 065
     Dates: start: 20180307
  9. TRAMAL [Concomitant]
     Active Substance: TRAMADOL
     Dosage: DOSE UNKNOWN
     Route: 065
     Dates: start: 20180222

REACTIONS (2)
  - Respiratory depression [Recovering/Resolving]
  - Hypercapnia [Recovering/Resolving]

NARRATIVE: CASE EVENT DATE: 20180311
